FAERS Safety Report 10304417 (Version 2)
Quarter: 2014Q3

REPORT INFORMATION
  Report Type: Spontaneous
  Country: IL (occurrence: IL)
  Receive Date: 20140715
  Receipt Date: 20140715
  Transmission Date: 20150326
  Serious: Yes (Hospitalization, Disabling, Other)
  Sender: FDA-Public Use
  Company Number: IL-009507513-1407ISR002876

PATIENT
  Age: 35 Year
  Sex: Female

DRUGS (2)
  1. NOXAFIL [Suspect]
     Active Substance: POSACONAZOLE
     Dosage: UNK
     Dates: start: 201309, end: 201312
  2. NOXAFIL [Suspect]
     Active Substance: POSACONAZOLE
     Indication: BRONCHOPULMONARY ASPERGILLOSIS
     Dosage: UNK, TID
     Route: 048
     Dates: start: 2009

REACTIONS (12)
  - Drug ineffective [Unknown]
  - Eye disorder [Recovering/Resolving]
  - Headache [Recovered/Resolved]
  - Drug ineffective [Unknown]
  - Hodgkin^s disease [Unknown]
  - Bone marrow transplant [Unknown]
  - Dysgeusia [Unknown]
  - Peripheral paralysis [Recovering/Resolving]
  - Infection [Unknown]
  - Lung infection [Recovering/Resolving]
  - Influenza [Unknown]
  - Aspergillus infection [Unknown]

NARRATIVE: CASE EVENT DATE: 2010
